FAERS Safety Report 8204370-8 (Version None)
Quarter: 2012Q1

REPORT INFORMATION
  Report Type: 
  Country: None (occurrence: None)
  Receive Date: 20120313
  Receipt Date: 20120313
  Transmission Date: 20120608
  Serious: Yes (Hospitalization)
  Sender: FDA-Public Use
  Company Number: None

PATIENT
  Age: 66 Year
  Sex: Female
  Weight: 43.998 kg

DRUGS (2)
  1. FOSAMAX [Suspect]
     Indication: OSTEOPOROSIS
     Dosage: 70MG
     Route: 048
     Dates: start: 20020614, end: 20080930
  2. BONIVA [Concomitant]
     Indication: OSTEOPOROSIS
     Dosage: 150MG
     Route: 048
     Dates: start: 20081118, end: 20120130

REACTIONS (2)
  - FALL [None]
  - FEMUR FRACTURE [None]
